FAERS Safety Report 5257351-0 (Version None)
Quarter: 2007Q1

REPORT INFORMATION
  Report Type: 
  Country: None (occurrence: None)
  Receive Date: 20070307
  Receipt Date: 20070228
  Transmission Date: 20070707
  Serious: Yes (Hospitalization, Other)
  Sender: FDA-Public Use
  Company Number: JP-BRISTOL-MYERS SQUIBB COMPANY-13702170

PATIENT
  Age: 71 Year
  Sex: Female
  Weight: 33 kg

DRUGS (2)
  1. GATIFLOXACIN [Suspect]
     Indication: MYCOBACTERIAL INFECTION
     Route: 048
  2. RIFAMPIN [Suspect]

REACTIONS (1)
  - HYPOGLYCAEMIC COMA [None]
